FAERS Safety Report 7647354-0 (Version None)
Quarter: 2011Q3

REPORT INFORMATION
  Report Type: 
  Country: None (occurrence: None)
  Receive Date: 20110801
  Receipt Date: 20110727
  Transmission Date: 20111222
  Serious: Yes (Hospitalization)
  Sender: FDA-Public Use
  Company Number: FI-ROCHE-792640

PATIENT
  Sex: Female

DRUGS (7)
  1. MORPHINE [Concomitant]
     Indication: PAIN
     Dosage: DRUG NAME:DEPOLAN
  2. SEPRAM [Concomitant]
     Indication: DEPRESSION
  3. PACLITAXEL [Suspect]
     Indication: BREAST CANCER
     Route: 042
  4. OXYCODONE HCL [Concomitant]
     Indication: PAIN
  5. BEVACIZUMAB [Suspect]
     Indication: BREAST CANCER
     Route: 042
  6. CALCICHEW D3 FORTE [Concomitant]
     Indication: CALCIUM DEFICIENCY
  7. POLYETHYLENE GLYCOL [Concomitant]
     Indication: CONSTIPATION
     Dosage: DRUG NAME:PEGORION

REACTIONS (1)
  - ARRHYTHMIA SUPRAVENTRICULAR [None]
